FAERS Safety Report 12793797 (Version 1)
Quarter: 2016Q3

REPORT INFORMATION
  Report Type: Spontaneous
  Country: FR (occurrence: FR)
  Receive Date: 20160929
  Receipt Date: 20160929
  Transmission Date: 20161109
  Serious: Yes (Hospitalization)
  Sender: FDA-Public Use
  Company Number: FR-BAYER-2016-186495

PATIENT
  Age: 66 Year
  Sex: Female

DRUGS (2)
  1. CLARITYNE [Suspect]
     Active Substance: LORATADINE
     Dosage: 10 MG, UNK
     Route: 048
     Dates: start: 201609
  2. CLARITYNE [Suspect]
     Active Substance: LORATADINE
     Dosage: 0.5 DF, UNK
     Dates: start: 20160925

REACTIONS (5)
  - Blood pressure increased [None]
  - Hallucination [None]
  - Tachycardia [None]
  - Dizziness [None]
  - Respiratory disorder [None]

NARRATIVE: CASE EVENT DATE: 20160923
